FAERS Safety Report 8004834-6 (Version None)
Quarter: 2011Q4

REPORT INFORMATION
  Report Type: 
  Country: None (occurrence: None)
  Receive Date: 20111223
  Receipt Date: 20111213
  Transmission Date: 20120403
  Serious: Yes (Hospitalization)
  Sender: FDA-Public Use
  Company Number: US-BRISTOL-MYERS SQUIBB COMPANY-15830219

PATIENT
  Age: 54 Year
  Sex: Male
  Weight: 43 kg

DRUGS (11)
  1. VICODIN [Concomitant]
     Indication: PAIN
     Dosage: 1 DF = 5/325MG
     Route: 048
  2. COMPAZINE [Concomitant]
     Indication: NAUSEA
     Route: 048
  3. ATIVAN [Concomitant]
     Indication: NAUSEA
     Route: 048
  4. CARBOPLATIN [Suspect]
     Indication: NON-SMALL CELL LUNG CANCER
     Dosage: NO OF INF:5
     Route: 042
     Dates: start: 20110209, end: 20110504
  5. DOCUSATE SODIUM [Concomitant]
     Indication: CONSTIPATION
     Dosage: 100MG 4*/DAY PRN
     Route: 048
  6. CETUXIMAB [Suspect]
     Indication: NON-SMALL CELL LUNG CANCER
     Dosage: DOSE:400MG/M2;250MG/M2/WEEK NO OF INF:14
     Route: 042
     Dates: start: 20110209, end: 20110518
  7. MAG-OX [Concomitant]
     Indication: MEDICAL DIET
     Route: 048
     Dates: start: 20110203
  8. COMPAZINE [Concomitant]
     Indication: VOMITING
     Route: 048
  9. ATIVAN [Concomitant]
     Indication: VOMITING
     Route: 048
  10. GEMZAR [Suspect]
     Indication: NON-SMALL CELL LUNG CANCER
     Dosage: NO OF INF:8
     Route: 042
     Dates: start: 20110209, end: 20110511
  11. MIRALAX [Concomitant]
     Indication: CONSTIPATION
     Route: 048
     Dates: start: 20110316

REACTIONS (2)
  - HYPONATRAEMIA [None]
  - SYNCOPE [None]
